FAERS Safety Report 9867629 (Version 1)
Quarter: 2014Q1

REPORT INFORMATION
  Report Type: Spontaneous
  Country: US (occurrence: US)
  Receive Date: 20140204
  Receipt Date: 20140204
  Transmission Date: 20141002
  Serious: Yes (Hospitalization, Other)
  Sender: FDA-Public Use
  Company Number: US-FRI-1000053280

PATIENT
  Age: 25 Year
  Sex: Female

DRUGS (2)
  1. FETZIMA [Suspect]
  2. EFFEXOR [Suspect]

REACTIONS (1)
  - Suicidal ideation [Unknown]
